FAERS Safety Report 15326924 (Version 7)
Quarter: 2020Q1

REPORT INFORMATION
  Report Type: Report from Study
  Country: None (occurrence: BE)
  Receive Date: 20180828
  Receipt Date: 20200218
  Transmission Date: 20200409
  Serious: Yes (Hospitalization)
  Sender: FDA-Public Use
  Company Number: BE-ABBVIE-18S-013-2460487-00

PATIENT
  Sex: Male
  Weight: 95 kg

DRUGS (11)
  1. LASIX [Concomitant]
     Active Substance: FUROSEMIDE
     Indication: PRODUCT USED FOR UNKNOWN INDICATION
     Route: 048
  2. DUODOPA [Suspect]
     Active Substance: CARBIDOPA\LEVODOPA
     Dosage: MD=0ML, CD=2.9ML/HR DURING 16HRS, ED=2ML, ND=2.9ML/HR DURING?8HRS
     Route: 050
     Dates: start: 20200213
  3. MIRAPEXIN [Concomitant]
     Active Substance: PRAMIPEXOLE
     Indication: PRODUCT USED FOR UNKNOWN INDICATION
     Dosage: 2
  4. DUODOPA [Suspect]
     Active Substance: CARBIDOPA\LEVODOPA
     Dosage: DOSES CONTINUOUSLY MONITORED AND ADAPTED
     Route: 050
     Dates: start: 20150417, end: 20180626
  5. DUODOPA [Suspect]
     Active Substance: CARBIDOPA\LEVODOPA
     Dosage: MD=3ML, CD=2.9ML/HR DURING 16HRS, ED=2ML, ND=2.1ML/HR DURING?8HRS
     Route: 050
     Dates: start: 20191209, end: 20200213
  6. ELIQUIS [Concomitant]
     Active Substance: APIXABAN
     Indication: PRODUCT USED FOR UNKNOWN INDICATION
     Route: 048
  7. DUODOPA [Suspect]
     Active Substance: CARBIDOPA\LEVODOPA
     Dosage: MD= 0ML CD= 2.9ML/HR DURING 16HRS ED= 2ML  ND=2.1ML/HR DURING 8HRS
     Route: 050
     Dates: start: 20180820, end: 20191209
  8. DUODOPA [Suspect]
     Active Substance: CARBIDOPA\LEVODOPA
     Dosage: MD= 3ML CD= 2.9ML/HR DURING 16HRS  ED= 2ML ND=2.1ML/HR DURING 8HRS
     Route: 050
     Dates: start: 20180626, end: 20180820
  9. LYRICA [Concomitant]
     Active Substance: PREGABALIN
     Indication: PRODUCT USED FOR UNKNOWN INDICATION
     Route: 048
  10. ALDACTONE [Concomitant]
     Active Substance: SPIRONOLACTONE
     Indication: PRODUCT USED FOR UNKNOWN INDICATION
     Route: 048
  11. DUODOPA [Suspect]
     Active Substance: CARBIDOPA\LEVODOPA
     Indication: PARKINSON^S DISEASE
     Dosage: MD= 8ML CD= 4.4ML/HR DURING 16HRS  ED= 1.5ML
     Route: 050
     Dates: start: 20150414, end: 20150417

REACTIONS (10)
  - Cognitive disorder [Not Recovered/Not Resolved]
  - Fall [Unknown]
  - Decubitus ulcer [Unknown]
  - Wheelchair user [Not Recovered/Not Resolved]
  - Gait inability [Unknown]
  - Confusional state [Not Recovered/Not Resolved]
  - Dyskinesia [Recovered/Resolved]
  - General physical health deterioration [Unknown]
  - Dyskinesia [Unknown]
  - Bedridden [Not Recovered/Not Resolved]
